FAERS Safety Report 23827398 (Version 2)
Quarter: 2024Q2

REPORT INFORMATION
  Report Type: Spontaneous
  Country: CA (occurrence: CA)
  Receive Date: 20240507
  Receipt Date: 20240510
  Transmission Date: 20240715
  Serious: Yes (Other)
  Sender: FDA-Public Use
  Company Number: CA-PURDUE-USA-2024-0309395

PATIENT
  Age: 61 Year
  Sex: Male

DRUGS (7)
  1. OXYCODONE HYDROCHLORIDE [Suspect]
     Active Substance: OXYCODONE HYDROCHLORIDE
     Indication: Pain
     Dosage: 20 MILLIGRAM, 2 EVERY 1 DAYS
     Route: 065
  2. BACLOFEN [Suspect]
     Active Substance: BACLOFEN
     Indication: Pain
     Dosage: 10 MILLIGRAM, 4 EVERY 1 DAYS
     Route: 065
  3. DULOXETINE [Suspect]
     Active Substance: DULOXETINE
     Indication: Pain
     Dosage: 90 MILLIGRAM, 1 EVERY 1 DAYS (1 EVERY 24 HOURS)
     Route: 065
  4. DULOXETINE [Suspect]
     Active Substance: DULOXETINE
     Dosage: 60 MILLIGRAM, 1 EVERY 1 DAYS(1 EVERY 24 HOURS)
     Route: 065
  5. OXYCODONE AND ACETAMINOPHEN [Suspect]
     Active Substance: ACETAMINOPHEN\OXYCODONE HYDROCHLORIDE
     Indication: Pain
     Dosage: 3 EVERY 1 DAYS
     Route: 065
  6. PREGABALIN [Suspect]
     Active Substance: PREGABALIN
     Indication: Pain
     Dosage: 150 MILLIGRAM, 3 EVERY 1 DAYS
     Route: 065
  7. BACLOFEN [Concomitant]
     Active Substance: BACLOFEN
     Indication: Pain
     Dosage: 10 MILLIGRAM, 4 EVERY 1 DAYS
     Route: 065

REACTIONS (4)
  - Brain fog [Recovered/Resolved]
  - Constipation [Recovered/Resolved]
  - Drug dependence [Recovered/Resolved]
  - Drug intolerance [Recovered/Resolved]
